FAERS Safety Report 16971372 (Version 1)
Quarter: 2019Q4

REPORT INFORMATION
  Report Type: Spontaneous
  Country: US (occurrence: US)
  Receive Date: 20191028
  Receipt Date: 20191028
  Transmission Date: 20200122
  Serious: No
  Sender: FDA-Public Use
  Company Number: None

PATIENT
  Age: 38 Year
  Sex: Male
  Weight: 105.75 kg

DRUGS (3)
  1. TRINTELLIX [Suspect]
     Active Substance: VORTIOXETINE HYDROBROMIDE
     Indication: DEPRESSION
     Dates: start: 20180920, end: 20191026
  2. OMEGA 3 [Concomitant]
     Active Substance: OMEGA-3 FATTY ACIDS
  3. LISINOPRIL. [Concomitant]
     Active Substance: LISINOPRIL

REACTIONS (8)
  - Conjunctivitis [None]
  - Anorgasmia [None]
  - Dysgeusia [None]
  - Constipation [None]
  - Dry mouth [None]
  - Orgasm abnormal [None]
  - Blepharospasm [None]
  - Dry eye [None]

NARRATIVE: CASE EVENT DATE: 20191011
